FAERS Safety Report 14773812 (Version 7)
Quarter: 2021Q1

REPORT INFORMATION
  Report Type: Report from Study
  Country: NL (occurrence: NL)
  Receive Date: 20180418
  Receipt Date: 20210122
  Transmission Date: 20210419
  Serious: Yes (Other)
  Sender: FDA-Public Use
  Company Number: NL-AUROBINDO-AUR-APL-2018-020378

PATIENT
  Age: 72 Year
  Sex: Male

DRUGS (5)
  1. PARACETAMOL [Interacting]
     Active Substance: ACETAMINOPHEN
     Indication: METASTASES TO BONE
     Dosage: UNK
     Route: 065
  2. DICLOFENAC [Interacting]
     Active Substance: DICLOFENAC
     Indication: METASTASES TO BONE
     Dosage: UNK
     Route: 065
  3. OXYCODONE [Suspect]
     Active Substance: OXYCODONE
     Indication: PAIN
     Dosage: UNK
     Route: 065
  4. OXYCODONE [Interacting]
     Active Substance: OXYCODONE
     Indication: METASTASES TO BONE
  5. ENZALUTAMIDE [Interacting]
     Active Substance: ENZALUTAMIDE
     Indication: HORMONE-REFRACTORY PROSTATE CANCER
     Dosage: 160 MILLIGRAM, ONCE A DAY
     Route: 065

REACTIONS (4)
  - Drug interaction [Unknown]
  - Metastases to bone [Unknown]
  - Therapy non-responder [Unknown]
  - Drug ineffective [Recovered/Resolved]
